FAERS Safety Report 7750338-5 (Version None)
Quarter: 2011Q3

REPORT INFORMATION
  Report Type: 
  Country: None (occurrence: None)
  Receive Date: 20110914
  Receipt Date: 20110902
  Transmission Date: 20111222
  Serious: Yes (Other)
  Sender: FDA-Public Use
  Company Number: FR-NOVOPROD-334482

PATIENT

DRUGS (3)
  1. VICTOZA [Suspect]
     Indication: TYPE 2 DIABETES MELLITUS
     Dosage: 0.6 MG, QD
     Route: 058
     Dates: start: 20110329, end: 20110331
  2. AMARYL [Concomitant]
  3. METFORMIN HCL [Concomitant]

REACTIONS (1)
  - HYPERLIPASAEMIA [None]
